FAERS Safety Report 16916394 (Version 3)
Quarter: 2020Q4

REPORT INFORMATION
  Report Type: Spontaneous
  Country: BR (occurrence: BR)
  Receive Date: 20191014
  Receipt Date: 20201129
  Transmission Date: 20210113
  Serious: Yes (Other)
  Sender: FDA-Public Use
  Company Number: BR-JNJFOC-20191009560

PATIENT
  Age: 56 Year
  Sex: Male
  Weight: 74 kg

DRUGS (3)
  1. INFLIXIMAB, RECOMBINANT [Suspect]
     Active Substance: INFLIXIMAB
     Indication: CROHN^S DISEASE
     Route: 042
     Dates: start: 20161110, end: 20170220
  2. AZATHIOPRINE. [Concomitant]
     Active Substance: AZATHIOPRINE
     Indication: CROHN^S DISEASE
     Route: 065
     Dates: end: 201612
  3. MESALAZINE [Concomitant]
     Active Substance: MESALAMINE
     Indication: CROHN^S DISEASE
     Route: 065
     Dates: end: 201612

REACTIONS (10)
  - Infusion related reaction [Unknown]
  - Rash [Not Recovered/Not Resolved]
  - Pain [Recovered/Resolved]
  - Crohn^s disease [Not Recovered/Not Resolved]
  - Diabetes mellitus [Unknown]
  - Visual impairment [Unknown]
  - Contusion [Unknown]
  - Infection [Unknown]
  - Furuncle [Recovered/Resolved]
  - Nerve injury [Recovering/Resolving]

NARRATIVE: CASE EVENT DATE: 2016
